FAERS Safety Report 9295587 (Version 1)
Quarter: 2013Q1

REPORT INFORMATION
  Report Type: Spontaneous
  Country: US (occurrence: None)
  Receive Date: 20130103
  Receipt Date: 20130103
  Transmission Date: 20140127
  Serious: Yes (Life-Threatening)
  Sender: FDA-Public Use
  Company Number: DSA_48200_2011

PATIENT
  Age: 63 Year
  Sex: Male

DRUGS (1)
  1. XENAZINE 25 MG (NOT SPECIFIED) [Suspect]
     Indication: CHOREA
     Route: 048
     Dates: start: 20110820, end: 20111107

REACTIONS (2)
  - Suicidal ideation [None]
  - Depression [None]
